FAERS Safety Report 4989731-2 (Version None)
Quarter: 2006Q2

REPORT INFORMATION
  Report Type: 
  Country: None (occurrence: None)
  Receive Date: 20060501
  Receipt Date: 20060418
  Transmission Date: 20061013
  Serious: Yes (Hospitalization)
  Sender: FDA-Public Use
  Company Number: 8016438

PATIENT
  Age: 40 Year
  Sex: Female

DRUGS (2)
  1. DELSYM [Suspect]
     Indication: COUGH
     Dosage: NI PO
     Route: 048
     Dates: start: 20060322, end: 20060322
  2. BENADRYL [Suspect]
     Indication: MULTIPLE ALLERGIES
     Dosage: 6
     Dates: start: 20060209

REACTIONS (5)
  - ANXIETY [None]
  - COUGH [None]
  - HEART RATE INCREASED [None]
  - HYPOKALAEMIA [None]
  - HYPOMAGNESAEMIA [None]
